FAERS Safety Report 6902149-8 (Version None)
Quarter: 2010Q3

REPORT INFORMATION
  Report Type: 
  Country: None (occurrence: None)
  Receive Date: 20100803
  Receipt Date: 20100729
  Transmission Date: 20110219
  Serious: Yes (Disabling, Other)
  Sender: FDA-Public Use
  Company Number: US-MERCK-1007USA01080

PATIENT
  Age: 5 Year

DRUGS (1)
  1. SINGULAIR [Suspect]
     Indication: ASTHMA
     Route: 048
     Dates: start: 20100101

REACTIONS (3)
  - MOOD ALTERED [None]
  - NIGHTMARE [None]
  - SUICIDAL IDEATION [None]
